FAERS Safety Report 5957785-2 (Version None)
Quarter: 2008Q4

REPORT INFORMATION
  Report Type: 
  Country: None (occurrence: None)
  Receive Date: 20081107
  Receipt Date: 20081031
  Transmission Date: 20090506
  Serious: Yes (Other)
  Sender: FDA-Public Use
  Company Number: 2008BI027196

PATIENT
  Age: 53 Year
  Sex: Female
  Weight: 51.2565 kg

DRUGS (7)
  1. AVONEX [Suspect]
     Indication: MULTIPLE SCLEROSIS
     Dosage: 30 UG;QW;IM : 30 UG;QW;IM : 30 UG;QW;IM
     Route: 030
     Dates: start: 19970101, end: 20010101
  2. AVONEX [Suspect]
     Indication: MULTIPLE SCLEROSIS
     Dosage: 30 UG;QW;IM : 30 UG;QW;IM : 30 UG;QW;IM
     Route: 030
     Dates: start: 20010101, end: 20030801
  3. AVONEX [Suspect]
     Indication: MULTIPLE SCLEROSIS
     Dosage: 30 UG;QW;IM : 30 UG;QW;IM : 30 UG;QW;IM
     Route: 030
     Dates: start: 20030801
  4. PREMPRO [Concomitant]
  5. DETROL [Concomitant]
  6. PROVIGIL [Concomitant]
  7. XANAX [Concomitant]

REACTIONS (5)
  - BREAST CANCER FEMALE [None]
  - BREAST CANCER IN SITU [None]
  - FATIGUE [None]
  - HOT FLUSH [None]
  - NIGHT SWEATS [None]
